FAERS Safety Report 13177484 (Version 1)
Quarter: 2017Q1

REPORT INFORMATION
  Report Type: Report from Study
  Country: US (occurrence: US)
  Receive Date: 20170201
  Receipt Date: 20170201
  Transmission Date: 20170428
  Serious: No
  Sender: FDA-Public Use
  Company Number: US-EXELIXIS-CABO-16006361

PATIENT
  Age: 72 Year
  Sex: Female

DRUGS (14)
  1. COMETRIQ [Suspect]
     Active Substance: CABOZANTINIB S-MALATE
     Indication: THYROID CANCER
     Dosage: 60 MG, QD
     Route: 048
     Dates: start: 20160409, end: 20160712
  2. MULTIVITAMINS [Concomitant]
     Active Substance: VITAMINS
  3. CALCIUM [Concomitant]
     Active Substance: CALCIUM
  4. DIPHENOXYLATE/ATROPINE [Concomitant]
     Active Substance: ATROPINE\DIPHENOXYLATE
  5. CARVEDILOL. [Concomitant]
     Active Substance: CARVEDILOL
  6. VITAMIN C [Concomitant]
     Active Substance: ASCORBIC ACID
  7. COMETRIQ [Suspect]
     Active Substance: CABOZANTINIB S-MALATE
     Dosage: 80 MG, QD
     Route: 048
     Dates: start: 20160713, end: 2016
  8. COMETRIQ [Suspect]
     Active Substance: CABOZANTINIB S-MALATE
     Dosage: 100 MG, QD
     Route: 048
     Dates: start: 201611
  9. OMEPRAZOLE. [Concomitant]
     Active Substance: OMEPRAZOLE
  10. LEVOTHYROXINE. [Concomitant]
     Active Substance: LEVOTHYROXINE
  11. VITAMIN D [Concomitant]
     Active Substance: CHOLECALCIFEROL
  12. AMOXICILLIN. [Concomitant]
     Active Substance: AMOXICILLIN
  13. MUSHROOM EXTRACT [Concomitant]
     Active Substance: DIETARY SUPPLEMENT
  14. PROBIOTICS [Concomitant]
     Active Substance: PROBIOTICS NOS

REACTIONS (19)
  - Tongue discomfort [Not Recovered/Not Resolved]
  - Productive cough [Not Recovered/Not Resolved]
  - Oral discomfort [Not Recovered/Not Resolved]
  - Decreased appetite [Unknown]
  - Nausea [Not Recovered/Not Resolved]
  - Sinus congestion [Unknown]
  - Diarrhoea [Recovering/Resolving]
  - Fatigue [Not Recovered/Not Resolved]
  - Bronchitis [Unknown]
  - Hypertension [Unknown]
  - Erythema [Unknown]
  - Secretion discharge [Not Recovered/Not Resolved]
  - Accidental overdose [Unknown]
  - Pain in jaw [Unknown]
  - Hyperhidrosis [Unknown]
  - Night sweats [Unknown]
  - Haematochezia [Unknown]
  - Muscle spasms [Not Recovered/Not Resolved]
  - Gastrooesophageal reflux disease [Unknown]

NARRATIVE: CASE EVENT DATE: 2016
